FAERS Safety Report 15271713 (Version 1)
Quarter: 2018Q3

REPORT INFORMATION
  Report Type: Spontaneous
  Country: US (occurrence: US)
  Receive Date: 20180727
  Receipt Date: 20180727
  Transmission Date: 20181010
  Serious: Yes (Life-Threatening, Hospitalization)
  Sender: FDA-Public Use
  Company Number: None

PATIENT
  Age: 60 Year
  Sex: Female
  Weight: 70.1 kg

DRUGS (2)
  1. DOXIL [Suspect]
     Active Substance: DOXORUBICIN HYDROCHLORIDE
     Indication: ENDOMETRIAL CANCER
     Dates: start: 20180101, end: 20180702
  2. AVASTIN [Suspect]
     Active Substance: BEVACIZUMAB
     Indication: ENDOMETRIAL CANCER
     Dates: start: 20180101, end: 20180702

REACTIONS (6)
  - Cardiomyopathy [None]
  - Nervous system disorder [None]
  - Posterior reversible encephalopathy syndrome [None]
  - Acute respiratory failure [None]
  - Ejection fraction abnormal [None]
  - Confusional state [None]

NARRATIVE: CASE EVENT DATE: 20180708
